FAERS Safety Report 12333373 (Version 6)
Quarter: 2016Q4

REPORT INFORMATION
  Report Type: Spontaneous
  Country: JP (occurrence: JP)
  Receive Date: 20160504
  Receipt Date: 20161020
  Transmission Date: 20170207
  Serious: Yes (Death, Life-Threatening, Other)
  Sender: FDA-Public Use
  Company Number: JP-ELI_LILLY_AND_COMPANY-JP201604009954

PATIENT
  Age: 80 Year
  Sex: Male

DRUGS (6)
  1. ERBITUX [Suspect]
     Active Substance: CETUXIMAB
     Indication: HYPOPHARYNGEAL CANCER
     Dosage: 440 MG, WEEKLY (1/W)
     Route: 042
     Dates: start: 20160125, end: 20160316
  2. AZASETRON [Concomitant]
     Active Substance: AZASETRON
     Indication: PROPHYLAXIS
     Dosage: 10 MG, WEEKLY (1/W)
     Route: 042
     Dates: start: 20160125, end: 20160316
  3. CLARITHROMYCIN. [Concomitant]
     Active Substance: CLARITHROMYCIN
     Indication: PROPHYLAXIS
     Dosage: 200 MG, BID
     Route: 048
     Dates: start: 20160118, end: 20160330
  4. LOXOPROFEN [Concomitant]
     Active Substance: LOXOPROFEN
     Indication: PROPHYLAXIS
     Dosage: 60 MG, TID
     Route: 048
     Dates: start: 20160225, end: 20160330
  5. DEXART [Concomitant]
     Active Substance: DEXAMETHASONE SODIUM PHOSPHATE
     Indication: PROPHYLAXIS
     Dosage: 6.6 MG, WEEKLY (1/W)
     Route: 042
     Dates: start: 20160125, end: 20160316
  6. GASTER [Concomitant]
     Active Substance: FAMOTIDINE
     Indication: PROPHYLAXIS
     Dosage: 20 MG, WEEKLY (1/W)
     Route: 042
     Dates: start: 20160125, end: 20160316

REACTIONS (18)
  - Hypermagnesaemia [Not Recovered/Not Resolved]
  - Radiation skin injury [Recovering/Resolving]
  - Mucosal infection [Recovering/Resolving]
  - Stomatitis [Recovering/Resolving]
  - Interstitial lung disease [Fatal]
  - Pharyngeal inflammation [Recovering/Resolving]
  - Anaemia [Not Recovered/Not Resolved]
  - Dysgeusia [Not Recovered/Not Resolved]
  - Hypoalbuminaemia [Not Recovered/Not Resolved]
  - Aspiration [Recovering/Resolving]
  - Dry mouth [Not Recovered/Not Resolved]
  - Dysphagia [Not Recovered/Not Resolved]
  - Lung infection [Not Recovered/Not Resolved]
  - Hypokalaemia [Recovered/Resolved]
  - Pyrexia [Not Recovered/Not Resolved]
  - Acute respiratory distress syndrome [Fatal]
  - Sepsis [Not Recovered/Not Resolved]
  - Hypercalcaemia [Recovered/Resolved]

NARRATIVE: CASE EVENT DATE: 20160201
